FAERS Safety Report 24172010 (Version 1)
Quarter: 2024Q3

REPORT INFORMATION
  Report Type: Report from Study
  Country: PK (occurrence: PK)
  Receive Date: 20240805
  Receipt Date: 20240805
  Transmission Date: 20241016
  Serious: Yes (Other)
  Sender: ROCHE
  Company Number: PK-ROCHE-10000040118

PATIENT
  Age: 69 Year
  Sex: Male

DRUGS (2)
  1. RITUXIMAB [Suspect]
     Active Substance: RITUXIMAB
     Indication: Diffuse large B-cell lymphoma recurrent
     Route: 042
     Dates: start: 20240706
  2. POLIVY [Suspect]
     Active Substance: POLATUZUMAB VEDOTIN-PIIQ
     Indication: Diffuse large B-cell lymphoma
     Route: 042
     Dates: start: 20240706

REACTIONS (1)
  - Diffuse large B-cell lymphoma recurrent [Unknown]

NARRATIVE: CASE EVENT DATE: 20240706
